FAERS Safety Report 10708988 (Version 2)
Quarter: 2015Q2

REPORT INFORMATION
  Report Type: Spontaneous
  Country: US (occurrence: US)
  Receive Date: 20150114
  Receipt Date: 20150429
  Transmission Date: 20150821
  Serious: Yes (Hospitalization, Other)
  Sender: FDA-Public Use
  Company Number: US-AMGEN-USASP2015001771

PATIENT
  Age: 71 Year
  Sex: Female
  Weight: 57 kg

DRUGS (17)
  1. SULFASALAZINE. [Concomitant]
     Active Substance: SULFASALAZINE
     Indication: RHEUMATOID ARTHRITIS
     Dosage: 500 MG, BID, 500 MG TABLET ONCE IN THE MORNING AND ONCE IN THE EVENING
     Route: 048
     Dates: start: 2001
  2. CALTRATE WITH VITAMIN D [Concomitant]
     Active Substance: CALCIUM CARBONATE\VITAMIN D
     Dosage: UNK, ONCE A DAY
     Route: 048
     Dates: start: 2000
  3. VITAMIN D                          /00107901/ [Concomitant]
     Active Substance: ERGOCALCIFEROL
     Dosage: 1000 IU, UNK
     Route: 048
     Dates: start: 2012
  4. FOLIC ACID. [Concomitant]
     Active Substance: FOLIC ACID
     Dosage: 1 MG, BID, ONE IN MORNING AND ONE AT NIGHT
     Dates: start: 2001
  5. ENBREL [Suspect]
     Active Substance: ETANERCEPT
     Indication: RHEUMATOID ARTHRITIS
     Dosage: 25 MG, 2 TIMES/WK
     Route: 030
     Dates: start: 200105, end: 201212
  6. TRADJENTA [Concomitant]
     Active Substance: LINAGLIPTIN
     Indication: DIABETES MELLITUS
     Dosage: 5 MG, UNK, ONCE DAILY
     Route: 048
     Dates: start: 2013
  7. METHOTREXATE [Concomitant]
     Active Substance: METHOTREXATE
     Indication: RHEUMATOID ARTHRITIS
     Dosage: 2.5 MG, UNK
     Dates: start: 200102, end: 201102
  8. PREDNISONE. [Suspect]
     Active Substance: PREDNISONE
     Indication: RHEUMATOID ARTHRITIS
     Dosage: 80 MG, UNK, ONCE A DAY
     Route: 048
     Dates: start: 200012
  9. HYDROXYCHLOROQUINE [Concomitant]
     Active Substance: HYDROXYCHLOROQUINE
     Indication: RHEUMATOID ARTHRITIS
     Dosage: 200 MG, BID
     Route: 048
     Dates: start: 201308
  10. SYNTHROID [Concomitant]
     Active Substance: LEVOTHYROXINE SODIUM
     Indication: HYPOTHYROIDISM
     Dosage: 500 MUG, UNK, ONCE DAILY
     Route: 048
     Dates: start: 199708
  11. ESTER C                            /00008001/ [Concomitant]
     Dosage: UNK, ONCE A DAY
     Route: 048
     Dates: start: 2000
  12. CRANBERRY CONCENTRATE [Concomitant]
     Active Substance: CRANBERRY CONCENTRATE
     Dosage: 300 MG, UNK, 1 TABLET A DAY
     Route: 048
     Dates: start: 2011
  13. PRILOSEC [Concomitant]
     Active Substance: OMEPRAZOLE MAGNESIUM
     Indication: GASTROOESOPHAGEAL REFLUX DISEASE
  14. PAROXETINE HCL [Concomitant]
     Active Substance: PAROXETINE HYDROCHLORIDE
     Dosage: 10 MG, UNK, ONCE DAILY
     Route: 048
     Dates: start: 201307
  15. XELJANZ [Suspect]
     Active Substance: TOFACITINIB CITRATE
     Indication: RHEUMATOID ARTHRITIS
     Dosage: 5 MG, BID, ONE 5 MG TABLET IN THE MORNING AND ONE IN THE EVENING
     Route: 048
     Dates: start: 20150102, end: 20150104
  16. MINOCYCLINE [Concomitant]
     Active Substance: MINOCYCLINE\MINOCYCLINE HYDROCHLORIDE
     Indication: RHEUMATOID ARTHRITIS
     Dosage: 100 MG, Q12H
     Route: 048
     Dates: start: 2013
  17. PRILOSEC [Concomitant]
     Active Substance: OMEPRAZOLE MAGNESIUM
     Indication: DYSPEPSIA
     Dosage: 20 MG, UNK, ONCE DAILY
     Route: 048
     Dates: start: 2008

REACTIONS (10)
  - Oropharyngeal pain [Not Recovered/Not Resolved]
  - Pain [Not Recovered/Not Resolved]
  - Therapeutic response decreased [Unknown]
  - Diabetes mellitus [Recovering/Resolving]
  - Platelet count decreased [Recovering/Resolving]
  - Alopecia [Not Recovered/Not Resolved]
  - Infection [Recovered/Resolved]
  - Feeling abnormal [Recovered/Resolved]
  - Incorrect route of drug administration [Unknown]
  - Nasopharyngitis [Not Recovered/Not Resolved]

NARRATIVE: CASE EVENT DATE: 2001
